FAERS Safety Report 15936975 (Version 1)
Quarter: 2019Q1

REPORT INFORMATION
  Report Type: Spontaneous
  Country: US (occurrence: US)
  Receive Date: 20190208
  Receipt Date: 20190208
  Transmission Date: 20190417
  Serious: Yes (Hospitalization)
  Sender: FDA-Public Use
  Company Number: None

PATIENT
  Age: 51 Year
  Sex: Female

DRUGS (11)
  1. GABAPENTIN. [Concomitant]
     Active Substance: GABAPENTIN
  2. TEMAZEPAM. [Concomitant]
     Active Substance: TEMAZEPAM
  3. OXYCODONE [Concomitant]
     Active Substance: OXYCODONE
  4. SERTRALINE [Concomitant]
     Active Substance: SERTRALINE HYDROCHLORIDE
  5. LISINOPRIL/HCTZ [Concomitant]
     Active Substance: HYDROCHLOROTHIAZIDE\LISINOPRIL
  6. BUPROPION. [Concomitant]
     Active Substance: BUPROPION
  7. TIZANIDINE. [Concomitant]
     Active Substance: TIZANIDINE
  8. VITAMIN D [Concomitant]
     Active Substance: CHOLECALCIFEROL
  9. CIMZIA [Suspect]
     Active Substance: CERTOLIZUMAB PEGOL
     Indication: CROHN^S DISEASE
     Dosage: ?          OTHER FREQUENCY:EVERY 14 DAYS;?
     Route: 058
     Dates: start: 20180212
  10. LORAZEPAM. [Concomitant]
     Active Substance: LORAZEPAM
  11. AMLODIPINE [Concomitant]
     Active Substance: AMLODIPINE BESYLATE

REACTIONS (1)
  - Infection [None]

NARRATIVE: CASE EVENT DATE: 20190127
